FAERS Safety Report 24948557 (Version 1)
Quarter: 2025Q1

REPORT INFORMATION
  Report Type: Spontaneous
  Country: US (occurrence: None)
  Receive Date: 20250207
  Receipt Date: 20250207
  Transmission Date: 20250409
  Serious: Yes (Death)
  Sender: FDA-CTU
  Company Number: None

PATIENT
  Age: 82 Year
  Sex: Female

DRUGS (15)
  1. AMBRISENTAN [Suspect]
     Active Substance: AMBRISENTAN
     Indication: Pulmonary hypertension
     Dosage: FREQUENCY : DAILY;?
     Route: 048
     Dates: start: 20240510, end: 20250111
  2. SILDENAFIL [Concomitant]
     Active Substance: SILDENAFIL
  3. SPIRONOLACTONE [Concomitant]
     Active Substance: SPIRONOLACTONE
  4. BUMETANIDE [Concomitant]
     Active Substance: BUMETANIDE
  5. MAGNESIUM OXIDE [Concomitant]
     Active Substance: MAGNESIUM OXIDE
  6. Timolol opht drop [Concomitant]
  7. dorzolamide opbt drop, [Concomitant]
  8. NORCO [Concomitant]
     Active Substance: ACETAMINOPHEN\HYDROCODONE BITARTRATE
  9. TYLENOL [Concomitant]
     Active Substance: ACETAMINOPHEN
  10. LEVOTHYROXINE [Concomitant]
     Active Substance: LEVOTHYROXINE
  11. OMEPRAZOLE [Concomitant]
     Active Substance: OMEPRAZOLE
  12. OJJAARA [Concomitant]
     Active Substance: MOMELOTINIB DIHYDROCHLORIDE MONOHYDRATE
  13. MIRTAZAPINE [Concomitant]
     Active Substance: MIRTAZAPINE
  14. ROSUVASTATIN [Concomitant]
     Active Substance: ROSUVASTATIN
  15. CULTURELLE [Concomitant]
     Active Substance: LACTOBACILLUS RHAMNOSUS

REACTIONS (12)
  - Femoral neck fracture [None]
  - Mental status changes [None]
  - Pneumonia [None]
  - Clostridium difficile infection [None]
  - Acute kidney injury [None]
  - Encephalopathy [None]
  - Pulmonary oedema [None]
  - Pleural effusion [None]
  - Pericardial effusion [None]
  - General physical health deterioration [None]
  - Dysphagia [None]
  - Drug intolerance [None]

NARRATIVE: CASE EVENT DATE: 20241218
